FAERS Safety Report 15238969 (Version 2)
Quarter: 2019Q1

REPORT INFORMATION
  Report Type: Spontaneous
  Country: US (occurrence: US)
  Receive Date: 20180803
  Receipt Date: 20190102
  Transmission Date: 20190417
  Serious: No
  Sender: FDA-Public Use
  Company Number: US-TEVA-2018-US-936953

PATIENT
  Age: 60 Year
  Sex: Male

DRUGS (4)
  1. SILDENAFIL. [Suspect]
     Active Substance: SILDENAFIL
     Indication: DYSPNOEA
     Dosage: 60 MILLIGRAM DAILY;
     Dates: start: 201806
  2. SILDENAFIL. [Suspect]
     Active Substance: SILDENAFIL
     Indication: PULMONARY FIBROSIS
     Dosage: TAKEN 10 MG BY SPLITTING THE TABLET
     Route: 065
     Dates: start: 201807
  3. SILDENAFIL. [Suspect]
     Active Substance: SILDENAFIL
     Dosage: 120 MILLIGRAM DAILY;
     Route: 065
  4. SILDENAFIL. [Suspect]
     Active Substance: SILDENAFIL
     Indication: PULMONARY HYPERTENSION
     Dosage: 60 MILLIGRAM DAILY;
     Route: 065

REACTIONS (3)
  - Dyschromatopsia [Recovered/Resolved]
  - Drug ineffective for unapproved indication [Unknown]
  - Vision blurred [Recovered/Resolved]

NARRATIVE: CASE EVENT DATE: 201806
